FAERS Safety Report 25909067 (Version 2)
Quarter: 2025Q4

REPORT INFORMATION
  Report Type: Report from Study
  Country: US (occurrence: US)
  Receive Date: 20251011
  Receipt Date: 20251209
  Transmission Date: 20260118
  Serious: Yes (Other)
  Sender: ABBVIE
  Company Number: US-ABBVIE-6497800

PATIENT
  Age: 87 Year

DRUGS (1)
  1. LUMIGAN [Suspect]
     Active Substance: BIMATOPROST
     Indication: Glaucoma
     Dosage: 0.01% OPHTHALMIC?FREQUENCY TEXT: 1 DROP BOTH EYES
     Route: 065
     Dates: start: 2021

REACTIONS (1)
  - Atrial fibrillation [Unknown]
